FAERS Safety Report 7653581-9 (Version None)
Quarter: 2011Q3

REPORT INFORMATION
  Report Type: 
  Country: None (occurrence: None)
  Receive Date: 20110803
  Receipt Date: 20110722
  Transmission Date: 20111222
  Serious: No
  Sender: FDA-Public Use
  Company Number: US-B.I. PHARMACEUTICALS,INC./RIDGEFIELD-2011-BP-18360BP

PATIENT
  Sex: Female

DRUGS (8)
  1. LEVOTHYROXINE SODIUM [Concomitant]
     Indication: HYPOTHYROIDISM
     Dosage: 125 MCG
     Route: 048
     Dates: start: 20030101
  2. MEDICATION NOT FURTHER SPECIFIED [Concomitant]
     Indication: MACULAR DEGENERATION
  3. LISINOPRIL [Concomitant]
     Indication: HYPERTENSION
     Dosage: 5 MG
     Route: 048
     Dates: start: 20110718
  4. CELEBREX [Concomitant]
     Indication: OSTEOARTHRITIS
     Dosage: 20 MG
     Route: 048
     Dates: start: 20030101
  5. LASIX [Concomitant]
     Indication: FLUID RETENTION
     Dosage: 160 MG
     Route: 048
     Dates: start: 20030101
  6. KLOR-CON [Concomitant]
     Indication: FLUID RETENTION
     Dosage: 40 MEQ
     Route: 048
     Dates: start: 20030101
  7. CARVEDIOL [Concomitant]
     Indication: HYPERTENSION
     Dosage: 12.5 MG
     Route: 048
     Dates: start: 20110718
  8. PRADAXA [Suspect]
     Indication: ATRIAL FIBRILLATION
     Dosage: 300 MG
     Route: 048
     Dates: start: 20110718

REACTIONS (1)
  - VISUAL IMPAIRMENT [None]
